FAERS Safety Report 10786516 (Version 1)
Quarter: 2015Q1

REPORT INFORMATION
  Report Type: Spontaneous
  Country: US (occurrence: US)
  Receive Date: 20150211
  Receipt Date: 20150211
  Transmission Date: 20150721
  Serious: No
  Sender: FDA-Public Use
  Company Number: US-TEVA-537614USA

PATIENT
  Sex: Female

DRUGS (1)
  1. NUVIGIL [Suspect]
     Active Substance: ARMODAFINIL
     Route: 048

REACTIONS (7)
  - Palpitations [Unknown]
  - Feeling jittery [Unknown]
  - Fatigue [Unknown]
  - Anger [Unknown]
  - Irritability [Unknown]
  - Anxiety [Unknown]
  - Tremor [Unknown]
